FAERS Safety Report 5392428-0 (Version None)
Quarter: 2007Q3

REPORT INFORMATION
  Report Type: 
  Country: None (occurrence: None)
  Receive Date: 20070720
  Receipt Date: 20070713
  Transmission Date: 20080115
  Serious: Yes (Hospitalization)
  Sender: FDA-Public Use
  Company Number: B0479834A

PATIENT
  Age: 46 Year
  Sex: Female

DRUGS (4)
  1. LAMICTAL [Suspect]
     Dosage: 25MG PER DAY
     Route: 048
     Dates: start: 20070607, end: 20070701
  2. RIVATRIL [Concomitant]
     Dosage: .5MG TWICE PER DAY
     Route: 048
     Dates: start: 20070520
  3. SEROQUEL [Concomitant]
     Dosage: 100MG FIVE TIMES PER DAY
     Route: 048
     Dates: start: 20070520
  4. DEPRAKINE [Concomitant]
     Dosage: 500MG THREE TIMES PER DAY
     Route: 048
     Dates: start: 20070520

REACTIONS (13)
  - DYSPHAGIA [None]
  - ERYTHEMA [None]
  - LIP SWELLING [None]
  - LOCAL SWELLING [None]
  - OEDEMA MUCOSAL [None]
  - ORAL PUSTULE [None]
  - PRURITUS [None]
  - PYREXIA [None]
  - RASH [None]
  - RASH ERYTHEMATOUS [None]
  - RASH MACULAR [None]
  - SWELLING FACE [None]
  - THROAT IRRITATION [None]
